FAERS Safety Report 7414853-6 (Version None)
Quarter: 2011Q2

REPORT INFORMATION
  Report Type: 
  Country: None (occurrence: None)
  Receive Date: 20110414
  Receipt Date: 20110405
  Transmission Date: 20111010
  Serious: Yes (Other)
  Sender: FDA-Public Use
  Company Number: DE-GENZYME-MOZO-1000499

PATIENT
  Age: 65 Year
  Sex: Male

DRUGS (6)
  1. MELPHALAN [Concomitant]
     Indication: HAEMATOPOIETIC STEM CELL MOBILISATION
     Dosage: 140 MG/M2, UNK
  2. ANTIVIRALS NOS [Concomitant]
     Indication: ANTIVIRAL PROPHYLAXIS
  3. NEUPOGEN [Concomitant]
  4. NEUPOGEN [Concomitant]
     Indication: HAEMATOPOIETIC STEM CELL MOBILISATION
     Dosage: 10 MCG/KG, QD
     Route: 058
  5. ANTIMICROBIALS [Concomitant]
     Indication: PROPHYLAXIS
  6. MOZOBIL [Suspect]
     Indication: HAEMATOPOIETIC STEM CELL MOBILISATION
     Dosage: 240 MCG/KG, QD
     Route: 065

REACTIONS (2)
  - HYPERURICAEMIA [None]
  - MUCOSAL INFLAMMATION [None]
